FAERS Safety Report 10759366 (Version 1)
Quarter: 2015Q1

REPORT INFORMATION
  Report Type: Spontaneous
  Country: FR (occurrence: FR)
  Receive Date: 20150203
  Receipt Date: 20150203
  Transmission Date: 20150721
  Serious: Yes (Disabling)
  Sender: FDA-Public Use
  Company Number: FR-SA-2015SA011408

PATIENT
  Age: 42 Year
  Sex: Male
  Weight: 72 kg

DRUGS (4)
  1. STILNOX [Suspect]
     Active Substance: ZOLPIDEM TARTRATE
     Dosage: ONE PACKAGE OF STILNOX
     Route: 048
     Dates: start: 20141128, end: 20141128
  2. TRUVADA [Suspect]
     Active Substance: EMTRICITABINE\TENOFOVIR DISOPROXIL FUMARATE
     Route: 048
     Dates: start: 20141030, end: 20141127
  3. TRUVADA [Suspect]
     Active Substance: EMTRICITABINE\TENOFOVIR DISOPROXIL FUMARATE
     Route: 048
     Dates: start: 20141128, end: 20141128
  4. LEXOMIL [Suspect]
     Active Substance: BROMAZEPAM
     Route: 048
     Dates: start: 20141128, end: 20141128

REACTIONS (3)
  - Acute kidney injury [Recovered/Resolved with Sequelae]
  - Intentional overdose [Unknown]
  - Renal tubular necrosis [Recovered/Resolved with Sequelae]

NARRATIVE: CASE EVENT DATE: 20141201
